FAERS Safety Report 4699401-6 (Version None)
Quarter: 2005Q3

REPORT INFORMATION
  Report Type: 
  Country: None (occurrence: None)
  Receive Date: 20050622
  Receipt Date: 20050609
  Transmission Date: 20060218
  Serious: Yes (Death)
  Sender: FDA-Public Use
  Company Number: 200504873

PATIENT
  Age: 46 Year
  Sex: Male

DRUGS (1)
  1. BOTOX [Suspect]
     Indication: TORTICOLLIS
     Dosage: 200 UNITS PRN IM
     Route: 030
     Dates: start: 20040701, end: 20050530

REACTIONS (1)
  - DEATH [None]
